FAERS Safety Report 23383220 (Version 1)
Quarter: 2024Q1

REPORT INFORMATION
  Report Type: Spontaneous
  Country: CA (occurrence: CA)
  Receive Date: 20240109
  Receipt Date: 20240109
  Transmission Date: 20240410
  Serious: Yes (Death)
  Sender: FDA-Public Use
  Company Number: CA-FreseniusKabi-FK202400321

PATIENT
  Age: 77 Year
  Sex: Male

DRUGS (1)
  1. MAGNESIUM SULFATE [Suspect]
     Active Substance: MAGNESIUM SULFATE\MAGNESIUM SULFATE HEPTAHYDRATE
     Indication: Hypomagnesaemia
     Dosage: 500 MG/ML (5000 MG / 10 ML) 10 ML VIALS(DIN 02139499)

REACTIONS (3)
  - Incorrect dose administered [Fatal]
  - Dose calculation error [Fatal]
  - Accidental overdose [Fatal]
